FAERS Safety Report 18432455 (Version 5)
Quarter: 2020Q4

REPORT INFORMATION
  Report Type: Spontaneous
  Country: RO (occurrence: RO)
  Receive Date: 20201027
  Receipt Date: 20201102
  Transmission Date: 20210114
  Serious: Yes (Hospitalization, Other)
  Sender: FDA-Public Use
  Company Number: RO-JNJFOC-20201021326

PATIENT
  Age: 51 Year
  Sex: Male

DRUGS (1)
  1. REMICADE [Suspect]
     Active Substance: INFLIXIMAB
     Indication: COLITIS ULCERATIVE
     Route: 042
     Dates: start: 201802

REACTIONS (7)
  - Fistula [Recovering/Resolving]
  - Salivary gland fistula [Recovering/Resolving]
  - Klebsiella infection [Recovering/Resolving]
  - Abscess bacterial [Recovering/Resolving]
  - Ludwig angina [Recovering/Resolving]
  - Tooth infection [Recovering/Resolving]
  - Abscess of salivary gland [Recovering/Resolving]
